FAERS Safety Report 10264326 (Version 2)
Quarter: 2014Q2

REPORT INFORMATION
  Report Type: Spontaneous
  Country: CO (occurrence: CO)
  Receive Date: 20140627
  Receipt Date: 20140627
  Transmission Date: 20141212
  Serious: Yes (Hospitalization, Other)
  Sender: FDA-Public Use
  Company Number: CO-JNJFOC-20140601100

PATIENT
  Age: 81 Year
  Sex: Male

DRUGS (4)
  1. ZYTIGA [Suspect]
     Indication: PROSTATE CANCER METASTATIC
     Route: 048
     Dates: start: 201402, end: 20140415
  2. BICALUTAMIDE [Concomitant]
     Route: 065
     Dates: start: 201208
  3. LEUPROLIDE ACETATE [Concomitant]
     Route: 065
     Dates: start: 201306, end: 201312
  4. ZOLENDRONIC ACID [Concomitant]
     Route: 065
     Dates: start: 20140405

REACTIONS (2)
  - Hepatotoxicity [Unknown]
  - Cholecystitis acute [Recovering/Resolving]
